FAERS Safety Report 7032760-8 (Version None)
Quarter: 2010Q4

REPORT INFORMATION
  Report Type: 
  Country: None (occurrence: None)
  Receive Date: 20101007
  Receipt Date: 20101005
  Transmission Date: 20110411
  Serious: Yes (Hospitalization)
  Sender: FDA-Public Use
  Company Number: US-PFIZER INC-2010123116

PATIENT
  Sex: Female

DRUGS (2)
  1. NORVASC [Suspect]
     Indication: HYPERTENSION
  2. PRINIVIL [Concomitant]
     Indication: HYPERTENSION

REACTIONS (6)
  - FACE OEDEMA [None]
  - HYPERSENSITIVITY [None]
  - RASH [None]
  - SPEECH DISORDER [None]
  - SWOLLEN TONGUE [None]
  - URTICARIA [None]
